FAERS Safety Report 9024741 (Version 1)
Quarter: 2012Q4

REPORT INFORMATION
  Report Type: Spontaneous
  Country: US (occurrence: None)
  Receive Date: 20121231
  Receipt Date: 20121231
  Transmission Date: 20130627
  Serious: Yes (Hospitalization)
  Sender: FDA-Public Use
  Company Number: UTC-027225

PATIENT
  Age: 72 Year
  Sex: Male

DRUGS (2)
  1. REMODULIN (5 MILLIGRAM/MILLILITERS, INJECTION FOR INFUSION) (TREPROSTINIL SODIUM) [Suspect]
     Indication: PRIMARY PULMONARY HYPERTENSION
     Dosage: 69.12 ug/kg (0.048 ug/kg, 1 in 1 min), subcutaneous
     Route: 058
     Dates: start: 20111021, end: 2012
  2. REMODULIN (5 MILLIGRAM/MILLILITERS, INJECTION FOR INFUSION) (TREPROSTINIL SODIUM) [Suspect]
     Indication: PRIMARY PULMONARY HYPERTENSION
     Dosage: 66.24 ug/kg (0.046 ug/kg, 1 in 1 min), subcutaneous
     Route: 058

REACTIONS (1)
  - Ascites [None]
